FAERS Safety Report 8104767-0 (Version None)
Quarter: 2012Q1

REPORT INFORMATION
  Report Type: 
  Country: None (occurrence: None)
  Receive Date: 20120201
  Receipt Date: 20120127
  Transmission Date: 20120608
  Serious: Yes (Death, Hospitalization)
  Sender: FDA-Public Use
  Company Number: US-CELGENEUS-163-21880-11110227

PATIENT
  Sex: Male

DRUGS (5)
  1. REVLIMID [Suspect]
     Indication: LYMPHOMA
     Dosage: 10 MILLIGRAM
     Route: 048
     Dates: start: 20111024, end: 20111031
  2. IMODIUM A-D [Concomitant]
     Route: 048
  3. METRONIDAZOLE [Concomitant]
     Route: 048
  4. OXYCODONE HCL [Concomitant]
     Dosage: 20 MILLIGRAM
     Route: 048
     Dates: start: 20110601
  5. REVLIMID [Suspect]
     Indication: MULTIPLE MYELOMA
     Dosage: 12.5 MILLIGRAM
     Route: 048
     Dates: start: 20111018

REACTIONS (4)
  - NON-HODGKIN'S LYMPHOMA [None]
  - DECREASED APPETITE [None]
  - CONFUSIONAL STATE [None]
  - AMNESIA [None]
